FAERS Safety Report 13950741 (Version 1)
Quarter: 2017Q3

REPORT INFORMATION
  Report Type: Spontaneous
  Country: US (occurrence: US)
  Receive Date: 20170908
  Receipt Date: 20170908
  Transmission Date: 20171128
  Serious: No
  Sender: FDA-Public Use
  Company Number: US-ROCHE-1131273

PATIENT
  Sex: Female

DRUGS (4)
  1. RITUXAN [Suspect]
     Active Substance: RITUXIMAB
     Indication: OFF LABEL USE
  2. RITUXAN [Suspect]
     Active Substance: RITUXIMAB
     Indication: IMMUNE THROMBOCYTOPENIC PURPURA
     Dosage: DRUG WAS STOPPED ON MID NOVEMBER (UNSPECIFIED DATE AND MONTH)
     Route: 065
     Dates: start: 20011012
  3. ESTROGEN [Concomitant]
     Active Substance: ESTROGENS
  4. RITUXAN [Suspect]
     Active Substance: RITUXIMAB
     Indication: THROMBOCYTOPENIA

REACTIONS (3)
  - Fatigue [Unknown]
  - Chills [Unknown]
  - Contusion [Recovering/Resolving]
